FAERS Safety Report 25255582 (Version 4)
Quarter: 2025Q2

REPORT INFORMATION
  Report Type: Spontaneous
  Country: PT (occurrence: PT)
  Receive Date: 20250430
  Receipt Date: 20250626
  Transmission Date: 20250716
  Serious: Yes (Life-Threatening, Hospitalization, Other)
  Sender: AUROBINDO
  Company Number: PT-RBHC-20-25-PRT-RB-0005813

PATIENT
  Age: 20 Year
  Sex: Female

DRUGS (3)
  1. AMOXICILLIN\CLAVULANIC ACID [Suspect]
     Active Substance: AMOXICILLIN\CLAVULANIC ACID
     Indication: Tooth abscess
     Route: 065
  2. IBUPROFEN [Suspect]
     Active Substance: IBUPROFEN
     Indication: Tooth abscess
     Route: 065
  3. AMOXICILLIN\CLAVULANATE POTASSIUM [Concomitant]
     Active Substance: AMOXICILLIN\CLAVULANATE POTASSIUM
     Indication: Tooth abscess
     Route: 065

REACTIONS (10)
  - Anaphylactic reaction [Recovering/Resolving]
  - Angioedema [Not Recovered/Not Resolved]
  - Laryngeal oedema [Recovering/Resolving]
  - Condition aggravated [Recovering/Resolving]
  - Tongue oedema [Recovering/Resolving]
  - Dysphonia [Recovering/Resolving]
  - Stridor [Recovering/Resolving]
  - Cyanosis [Recovering/Resolving]
  - Hereditary angioedema [Unknown]
  - Hypersensitivity [Recovered/Resolved]
